FAERS Safety Report 5155000-3 (Version None)
Quarter: 2006Q4

REPORT INFORMATION
  Report Type: 
  Country: None (occurrence: None)
  Receive Date: 20061121
  Receipt Date: 20060511
  Transmission Date: 20070319
  Serious: Yes (Death, Hospitalization)
  Sender: FDA-Public Use
  Company Number: AU-BAYER-200611960GDS

PATIENT
  Age: 47 Year
  Sex: Female
  Weight: 62 kg

DRUGS (19)
  1. SORAFENIB [Suspect]
     Indication: MALIGNANT MELANOMA
     Dosage: TOTAL DAILY DOSE: 800 MG
     Route: 048
     Dates: start: 20060401, end: 20060602
  2. FENTANYL [Concomitant]
     Indication: ANALGESIC EFFECT
     Route: 065
     Dates: start: 20060330, end: 20060620
  3. MS CONTIN [Concomitant]
     Indication: ANALGESIC EFFECT
     Route: 065
     Dates: start: 20060327, end: 20060421
  4. MS CONTIN [Concomitant]
     Route: 065
     Dates: start: 20060422, end: 20060428
  5. MS CONTIN [Concomitant]
     Route: 065
     Dates: start: 20060429, end: 20060502
  6. MS CONTIN [Concomitant]
     Route: 065
     Dates: start: 20060503
  7. GABAPENTIN [Concomitant]
     Indication: ANALGESIC EFFECT
     Route: 065
     Dates: start: 20060502, end: 20060606
  8. ORDINE [Concomitant]
     Indication: ANALGESIC EFFECT
     Route: 065
     Dates: start: 20060407, end: 20060606
  9. DEXAMETHASONE TAB [Concomitant]
     Indication: ANTIINFLAMMATORY THERAPY
     Route: 065
     Dates: start: 20060328, end: 20060407
  10. DEXAMETHASONE TAB [Concomitant]
     Route: 065
     Dates: start: 20060407, end: 20060606
  11. DOTHIEPIN HYDROCHLORIDE [Concomitant]
     Indication: DEPRESSION
     Route: 065
     Dates: start: 20050501, end: 20060606
  12. PANADOL [Concomitant]
     Indication: ANALGESIC EFFECT
     Route: 065
     Dates: start: 20060103, end: 20060606
  13. BRUFEN [Concomitant]
     Indication: ANALGESIC EFFECT
     Route: 065
     Dates: start: 20060114, end: 20060606
  14. PRAMIN [Concomitant]
     Indication: NAUSEA
     Route: 065
     Dates: start: 20060309, end: 20060606
  15. FUROSEMIDE [Concomitant]
     Indication: DIURETIC THERAPY
     Route: 065
     Dates: start: 20060407
  16. TRIMETHOPRIM [Concomitant]
     Indication: CYSTITIS
     Route: 065
     Dates: start: 20060328, end: 20060405
  17. SOMAC [Concomitant]
     Indication: PROPHYLAXIS
     Route: 065
     Dates: start: 20060119, end: 20060606
  18. LORAZEPAM [Concomitant]
     Indication: ANXIETY
     Route: 065
     Dates: start: 20060119, end: 20060606
  19. KETAMINE HCL [Concomitant]
     Indication: ANALGESIC INTERVENTION SUPPORTIVE THERAPY
     Route: 065
     Dates: start: 20060531, end: 20060606

REACTIONS (8)
  - AGITATION [None]
  - CEREBRAL HAEMORRHAGE [None]
  - DISEASE PROGRESSION [None]
  - GRAND MAL CONVULSION [None]
  - MALIGNANT MELANOMA [None]
  - PAIN MANAGEMENT [None]
  - UNRESPONSIVE TO STIMULI [None]
  - VITH NERVE PARALYSIS [None]
